FAERS Safety Report 5499061-0 (Version None)
Quarter: 2007Q4

REPORT INFORMATION
  Report Type: 
  Country: None (occurrence: None)
  Receive Date: 20071026
  Receipt Date: 20070524
  Transmission Date: 20080405
  Serious: No
  Sender: FDA-Public Use
  Company Number: A0652868A

PATIENT
  Age: 85 Year
  Sex: Male

DRUGS (2)
  1. ADVAIR DISKUS 100/50 [Suspect]
     Indication: DRUG USE FOR UNKNOWN INDICATION
     Route: 055
     Dates: start: 20070401, end: 20070501
  2. NO CONCURRENT MEDICATION [Concomitant]

REACTIONS (2)
  - FOREIGN BODY SENSATION IN EYES [None]
  - LACRIMATION INCREASED [None]
